FAERS Safety Report 7470199-1 (Version None)
Quarter: 2011Q2

REPORT INFORMATION
  Report Type: 
  Country: None (occurrence: None)
  Receive Date: 20110429
  Receipt Date: 20110418
  Transmission Date: 20111010
  Serious: Yes (Other)
  Sender: FDA-Public Use
  Company Number: COL_08387_2011

PATIENT
  Age: 30 Year
  Sex: Female

DRUGS (1)
  1. PERIOGARD [Suspect]
     Indication: GINGIVITIS
     Dosage: 1 DF 1X, NI, ORAL
     Route: 048
     Dates: start: 20110416, end: 20110416

REACTIONS (4)
  - DYSPNOEA [None]
  - ORAL DISCOMFORT [None]
  - PHARYNGEAL OEDEMA [None]
  - HYPOAESTHESIA ORAL [None]
